FAERS Safety Report 23343655 (Version 1)
Quarter: 2023Q4

REPORT INFORMATION
  Report Type: Spontaneous
  Country: US (occurrence: None)
  Receive Date: 20231227
  Receipt Date: 20231227
  Transmission Date: 20240110
  Serious: Yes (Other)
  Sender: FDA-Public Use
  Company Number: None

PATIENT
  Age: 14 Year
  Sex: Male
  Weight: 73.8 kg

DRUGS (4)
  1. ATOMOXETINE [Suspect]
     Active Substance: ATOMOXETINE
     Indication: Attention deficit hyperactivity disorder
     Dates: start: 20231130, end: 20231207
  2. HALOPERIDOL [Concomitant]
     Active Substance: HALOPERIDOL
     Dates: start: 20230101
  3. CLONIDINE [Concomitant]
     Active Substance: CLONIDINE
     Dates: start: 20230101
  4. BENZTROPINE [Concomitant]
     Active Substance: BENZTROPINE
     Dates: start: 20230101

REACTIONS (3)
  - Palpitations [None]
  - Nausea [None]
  - Faeces soft [None]

NARRATIVE: CASE EVENT DATE: 20231207
